FAERS Safety Report 7466313-4 (Version None)
Quarter: 2011Q2

REPORT INFORMATION
  Report Type: 
  Country: None (occurrence: None)
  Receive Date: 20110509
  Receipt Date: 20100728
  Transmission Date: 20111010
  Serious: Yes (Other)
  Sender: FDA-Public Use
  Company Number: US-ALEXION-A201000897

PATIENT
  Sex: Female

DRUGS (2)
  1. PROVERA [Suspect]
     Dosage: UNK
     Dates: end: 20100701
  2. SOLIRIS [Suspect]
     Indication: PAROXYSMAL NOCTURNAL HAEMOGLOBINURIA
     Dosage: UNK
     Route: 042

REACTIONS (4)
  - CONTUSION [None]
  - UTERINE ENLARGEMENT [None]
  - FATIGUE [None]
  - MENORRHAGIA [None]
